FAERS Safety Report 4916714-0 (Version None)
Quarter: 2006Q1

REPORT INFORMATION
  Report Type: 
  Country: None (occurrence: None)
  Receive Date: 20060220
  Receipt Date: 20060208
  Transmission Date: 20060701
  Serious: Yes (Other)
  Sender: FDA-Public Use
  Company Number: PHBS2006CA02254

PATIENT
  Age: 35 Year
  Sex: Female
  Weight: 50 kg

DRUGS (1)
  1. CARBAMAZEPINE [Suspect]
     Indication: COMPLEX PARTIAL SEIZURES
     Dosage: 600 MG/DAY IN 3 DIVIDED DOSES
     Route: 065

REACTIONS (6)
  - DIPLOPIA [None]
  - DRUG LEVEL FLUCTUATING [None]
  - ELECTROMYOGRAM ABNORMAL [None]
  - EYELID PTOSIS [None]
  - MYASTHENIA GRAVIS [None]
  - TENSILON TEST ABNORMAL [None]
